FAERS Safety Report 7222734-6 (Version None)
Quarter: 2011Q1

REPORT INFORMATION
  Report Type: 
  Country: None (occurrence: None)
  Receive Date: 20110104
  Receipt Date: 20101222
  Transmission Date: 20110831
  Serious: Yes (Other)
  Sender: FDA-Public Use
  Company Number: A0901329A

PATIENT
  Age: 73 Year
  Sex: Female

DRUGS (1)
  1. METHYLCELLULOSE (FORMULATION UNKNOWN) (METHYLCELLULOSE) [Suspect]
     Dosage: ORAL
     Route: 048

REACTIONS (6)
  - EAR DISCOMFORT [None]
  - RECTAL HAEMORRHAGE [None]
  - PRODUCT LOT NUMBER ISSUE [None]
  - PRODUCT EXPIRATION DATE ISSUE [None]
  - BLOOD URINE PRESENT [None]
  - OROPHARYNGEAL PAIN [None]
